FAERS Safety Report 9501900 (Version 1)
Quarter: 2013Q3

REPORT INFORMATION
  Report Type: Report from Study
  Country: DE (occurrence: DE)
  Receive Date: 20130905
  Receipt Date: 20130905
  Transmission Date: 20140515
  Serious: Yes (Hospitalization)
  Sender: FDA-Public Use
  Company Number: DE-ABBOTT-13P-062-1141405-00

PATIENT
  Sex: Male
  Weight: 85 kg

DRUGS (5)
  1. HUMIRA [Suspect]
     Indication: PSORIASIS
     Route: 058
     Dates: start: 20130408, end: 20130423
  2. CANDESARTAN [Concomitant]
     Indication: HYPERTENSION
     Route: 048
  3. BASALINSULIN [Concomitant]
     Indication: DIABETES MELLITUS
     Route: 058
  4. DECORTIN [Concomitant]
     Indication: PSORIASIS
     Route: 048
     Dates: start: 20130315, end: 20130415
  5. HUMAN INSULIN [Concomitant]
     Indication: PRODUCT USED FOR UNKNOWN INDICATION
     Route: 058

REACTIONS (12)
  - Weight decreased [Not Recovered/Not Resolved]
  - Colon cancer [Not Recovered/Not Resolved]
  - Psoriasis [Not Recovered/Not Resolved]
  - Rash generalised [Not Recovered/Not Resolved]
  - Pruritus [Not Recovered/Not Resolved]
  - General physical health deterioration [Not Recovered/Not Resolved]
  - Intestinal polyp [Recovered/Resolved]
  - Gastritis [Not Recovered/Not Resolved]
  - Aortic valve incompetence [Unknown]
  - Drug ineffective [Not Recovered/Not Resolved]
  - Haemangioma [Unknown]
  - Tinnitus [Unknown]
